FAERS Safety Report 6627142-4 (Version None)
Quarter: 2010Q1

REPORT INFORMATION
  Report Type: 
  Country: None (occurrence: None)
  Receive Date: 20100311
  Receipt Date: 20091016
  Transmission Date: 20100710
  Serious: No
  Sender: FDA-Public Use
  Company Number: A0812161A

PATIENT
  Age: 42 Year
  Sex: Male

DRUGS (1)
  1. NICORETTE [Suspect]

REACTIONS (5)
  - COUGH [None]
  - EYE IRRITATION [None]
  - OCULAR HYPERAEMIA [None]
  - PHARYNGEAL HYPOAESTHESIA [None]
  - PURULENT DISCHARGE [None]
